FAERS Safety Report 25111386 (Version 1)
Quarter: 2025Q1

REPORT INFORMATION
  Report Type: Spontaneous
  Country: CN (occurrence: CN)
  Receive Date: 20250324
  Receipt Date: 20250324
  Transmission Date: 20250409
  Serious: Yes (Hospitalization)
  Sender: MYLAN
  Company Number: CN-MYLANLABS-2025M1024546

PATIENT
  Age: 58 Year
  Sex: Male

DRUGS (4)
  1. NORVASC [Suspect]
     Active Substance: AMLODIPINE BESYLATE
     Indication: Hypertension
     Dosage: 5 MILLIGRAM, QD (1 TABLET/DAY)
  2. NORVASC [Suspect]
     Active Substance: AMLODIPINE BESYLATE
     Dosage: 5 MILLIGRAM, QD (1 TABLET/DAY)
     Route: 065
  3. NORVASC [Suspect]
     Active Substance: AMLODIPINE BESYLATE
     Dosage: 5 MILLIGRAM, QD (1 TABLET/DAY)
     Route: 065
  4. NORVASC [Suspect]
     Active Substance: AMLODIPINE BESYLATE
     Dosage: 5 MILLIGRAM, QD (1 TABLET/DAY)

REACTIONS (3)
  - Dizziness [Unknown]
  - Drug ineffective [Unknown]
  - Suspected counterfeit product [Unknown]
